FAERS Safety Report 15481084 (Version 1)
Quarter: 2018Q4

REPORT INFORMATION
  Report Type: Spontaneous
  Country: US (occurrence: US)
  Receive Date: 20181010
  Receipt Date: 20181010
  Transmission Date: 20190205
  Serious: No
  Sender: FDA-Public Use
  Company Number: US-SA-2018SA274829

PATIENT
  Sex: Male

DRUGS (1)
  1. ACT RESTORING ANTICAVITY FLUORIDE MINT BURST [Suspect]
     Active Substance: SODIUM FLUORIDE

REACTIONS (2)
  - Oral mucosal exfoliation [Unknown]
  - Product taste abnormal [Unknown]
